FAERS Safety Report 11354435 (Version 1)
Quarter: 2015Q3

REPORT INFORMATION
  Report Type: Spontaneous
  Country: US (occurrence: US)
  Receive Date: 20150807
  Receipt Date: 20150807
  Transmission Date: 20151125
  Serious: No
  Sender: FDA-Public Use
  Company Number: US-JNJFOC-20141011681

PATIENT
  Age: 63 Year
  Sex: Female
  Weight: 70.31 kg

DRUGS (10)
  1. SLEEPING DRUG [Concomitant]
     Indication: SLEEP DISORDER THERAPY
     Dosage: 5 YEARS
     Route: 065
  2. CRANBERRY/VITAMIN C [Concomitant]
     Indication: URINARY TRACT INFECTION
     Dosage: 1 YEAR
     Route: 065
  3. EQUATE ALLERGY RELIEF NOS [Concomitant]
     Active Substance: CETIRIZINE HYDROCHLORIDE OR DIPHENHYDRAMINE HYDROCHLORIDE OR FEXOFENADINE HYDROCHLORIDE OR LORATADINE
     Indication: TOOTHACHE
     Dosage: OFF AND ON 2 YEARS
     Route: 065
  4. VITAMIN B12 [Concomitant]
     Active Substance: CYANOCOBALAMIN
     Indication: ROUTINE HEALTH MAINTENANCE
     Dosage: 4 MONTHS
     Route: 065
  5. COLON CLEANSER [Concomitant]
     Indication: GASTROINTESTINAL DISORDER
     Dosage: 2 MONTHS
     Route: 065
  6. WOMENS ROGAINE [Suspect]
     Active Substance: MINOXIDIL
     Indication: HAIR GROWTH ABNORMAL
     Dosage: MORNING AND NIGHT
     Route: 061
     Dates: start: 20141011, end: 20141014
  7. MULTIVITAMINS [Concomitant]
     Active Substance: VITAMINS
     Indication: ROUTINE HEALTH MAINTENANCE
     Dosage: 4 MONTHS
     Route: 065
  8. OMEPRAZOLE. [Concomitant]
     Active Substance: OMEPRAZOLE
     Indication: HYPERCHLORHYDRIA
     Dosage: 2-3 YEARS
     Route: 065
  9. EQUATE ALLERGY RELIEF NOS [Concomitant]
     Active Substance: CETIRIZINE HYDROCHLORIDE OR DIPHENHYDRAMINE HYDROCHLORIDE OR FEXOFENADINE HYDROCHLORIDE OR LORATADINE
     Indication: EAR PAIN
     Dosage: OFF AND ON 2 YEARS
     Route: 065
  10. WOMENS ROGAINE [Suspect]
     Active Substance: MINOXIDIL
     Route: 061

REACTIONS (2)
  - Skin burning sensation [Not Recovered/Not Resolved]
  - Erythema [Recovered/Resolved]

NARRATIVE: CASE EVENT DATE: 20141011
